FAERS Safety Report 22598310 (Version 1)
Quarter: 2023Q2

REPORT INFORMATION
  Report Type: Spontaneous
  Country: ES (occurrence: ES)
  Receive Date: 20230614
  Receipt Date: 20230614
  Transmission Date: 20230721
  Serious: Yes (Life-Threatening, Hospitalization, Other)
  Sender: FDA-Public Use
  Company Number: ES-AEMPS-1377674

PATIENT
  Age: 47 Year
  Sex: Male
  Weight: 91.1 kg

DRUGS (7)
  1. ATORVASTATIN [Interacting]
     Active Substance: ATORVASTATIN
     Indication: Product used for unknown indication
     Dosage: 560 MILLIGRAM TOTAL
     Route: 048
     Dates: start: 20230508, end: 20230508
  2. EBASTINE [Interacting]
     Active Substance: EBASTINE
     Indication: Product used for unknown indication
     Dosage: 200 MILLIGRAM TOTAL
     Route: 048
     Dates: start: 20230508, end: 20230508
  3. MIRTAZAPINE [Interacting]
     Active Substance: MIRTAZAPINE
     Indication: Product used for unknown indication
     Dosage: 900 MILLIGRAM TOTAL
     Route: 048
     Dates: start: 20230508, end: 20230508
  4. AMLODIPINE\HYDROCHLOROTHIAZIDE\OLMESARTAN [Interacting]
     Active Substance: AMLODIPINE\HYDROCHLOROTHIAZIDE\OLMESARTAN
     Indication: Product used for unknown indication
     Dosage: 12 DOSAGE FORM TOTAL (480MG/120MG/300MG)
     Route: 048
     Dates: start: 20230508, end: 20230508
  5. DEFLAZACORT [Interacting]
     Active Substance: DEFLAZACORT
     Indication: Product used for unknown indication
     Dosage: 240 MILLIGRAM TOTAL
     Route: 048
     Dates: start: 20230508, end: 20230508
  6. FLUOXETINE HYDROCHLORIDE [Interacting]
     Active Substance: FLUOXETINE HYDROCHLORIDE
     Indication: Product used for unknown indication
     Dosage: 1000 MILLIGRAM TOTAL
     Route: 048
     Dates: start: 20230508, end: 20230508
  7. ESCITALOPRAM OXALATE [Interacting]
     Active Substance: ESCITALOPRAM OXALATE
     Indication: Product used for unknown indication
     Dosage: 90 MILLIGRAM TOTAL
     Route: 048
     Dates: start: 20230508, end: 20230508

REACTIONS (3)
  - Depressed level of consciousness [Recovered/Resolved]
  - Pneumonia aspiration [Recovered/Resolved]
  - Haemodynamic instability [Recovered/Resolved]

NARRATIVE: CASE EVENT DATE: 20230508
